FAERS Safety Report 10486706 (Version 3)
Quarter: 2015Q2

REPORT INFORMATION
  Report Type: Spontaneous
  Country: FR (occurrence: FR)
  Receive Date: 20140929
  Receipt Date: 20150402
  Transmission Date: 20150821
  Serious: Yes (Hospitalization)
  Sender: FDA-Public Use
  Company Number: FR-RRD-14-00110

PATIENT
  Age: 58 Year
  Sex: Male

DRUGS (2)
  1. MUSTARGEN [Suspect]
     Active Substance: MECHLORETHAMINE HYDROCHLORIDE
     Indication: LYMPHOMA
     Route: 061
     Dates: start: 20140707, end: 20140818
  2. BICNU [Suspect]
     Active Substance: CARMUSTINE
     Indication: LYMPHOMA
     Route: 061
     Dates: start: 2012, end: 20130430

REACTIONS (4)
  - Off label use [Recovered/Resolved]
  - Hypoxia [Recovering/Resolving]
  - Dyspnoea exertional [Recovering/Resolving]
  - Asthenia [Recovering/Resolving]

NARRATIVE: CASE EVENT DATE: 201407
